FAERS Safety Report 10129941 (Version 1)
Quarter: 2014Q2

REPORT INFORMATION
  Report Type: Spontaneous
  Country: US (occurrence: None)
  Receive Date: 20140424
  Receipt Date: 20140424
  Transmission Date: 20141212
  Serious: No
  Sender: FDA-Public Use
  Company Number: None

PATIENT
  Age: 24 Year
  Sex: Female

DRUGS (1)
  1. MAKENA [Suspect]
     Route: 030
     Dates: start: 20140212

REACTIONS (3)
  - Injection site pain [None]
  - Injection site pruritus [None]
  - Injection site swelling [None]
